FAERS Safety Report 4557806-8 (Version None)
Quarter: 2005Q1

REPORT INFORMATION
  Report Type: 
  Country: None (occurrence: None)
  Receive Date: 20050121
  Receipt Date: 20040914
  Transmission Date: 20050727
  Serious: Yes (Other)
  Sender: FDA-Public Use
  Company Number: PHEH2004US09925

PATIENT
  Age: 63 Year
  Sex: Female

DRUGS (4)
  1. ZOMETA [Suspect]
     Indication: MULTIPLE MYELOMA
     Dosage: 4 MG, QMO
     Dates: start: 20020521
  2. AREDIA [Suspect]
     Indication: MULTIPLE MYELOMA
     Dosage: 90 MG, QMO
     Route: 042
     Dates: start: 20010101, end: 20020101
  3. DEXAMETHASONE [Concomitant]
     Dosage: 40 MG, OT
  4. THALIDOMIDE [Concomitant]
     Dosage: 200 MG, QD

REACTIONS (13)
  - BONE DISORDER [None]
  - BONE LESION [None]
  - CATHETER RELATED COMPLICATION [None]
  - GINGIVAL PAIN [None]
  - INFECTION [None]
  - INFLAMMATION [None]
  - JAW DISORDER [None]
  - OSTEOLYSIS [None]
  - OSTEOMYELITIS [None]
  - PURULENT DISCHARGE [None]
  - TENDERNESS [None]
  - TOOTH LOSS [None]
  - WOUND DEBRIDEMENT [None]
